FAERS Safety Report 18062784 (Version 1)
Quarter: 2020Q3

REPORT INFORMATION
  Report Type: Spontaneous
  Country: JP (occurrence: JP)
  Receive Date: 20200723
  Receipt Date: 20200723
  Transmission Date: 20201103
  Serious: Yes (Other)
  Sender: FDA-Public Use
  Company Number: JP-ALLERGAN-2027142US

PATIENT
  Sex: Female

DRUGS (2)
  1. ASENAPINE MALEATE ? BP [Suspect]
     Active Substance: ASENAPINE MALEATE
     Indication: SCHIZOPHRENIA
     Dosage: 5 MG
     Route: 060
  2. RISPERIDONE. [Concomitant]
     Active Substance: RISPERIDONE
     Dosage: 7 MG

REACTIONS (4)
  - Irritability [Unknown]
  - Hypoaesthesia oral [Unknown]
  - Insomnia [Unknown]
  - Akathisia [Unknown]
